FAERS Safety Report 8613674-6 (Version None)
Quarter: 2012Q3

REPORT INFORMATION
  Report Type: 
  Country: None (occurrence: None)
  Receive Date: 20120823
  Receipt Date: 20120809
  Transmission Date: 20120928
  Serious: Yes (Disabling)
  Sender: FDA-Public Use
  Company Number: US-009507513-1207USA011549

PATIENT

DRUGS (8)
  1. SAPHRIS [Suspect]
     Indication: ANXIETY DISORDER
  2. SAVELLA [Concomitant]
     Dosage: 50 MG, BID
  3. PROZAC [Concomitant]
     Dosage: 20 MG, UNK
  4. PROZAC [Concomitant]
     Dosage: 80 MG, UNK
  5. LAMOTRIGINE [Concomitant]
     Dosage: 300 MG, UNK
  6. SAPHRIS [Suspect]
     Indication: BIPOLAR DISORDER
     Dosage: UNK
     Route: 060
     Dates: start: 20111005, end: 20120607
  7. METHADONE HYDROCHLORIDE [Concomitant]
     Dosage: 10 MG, QID
  8. LORAZEPAM [Concomitant]
     Dosage: 1 MG, TID

REACTIONS (5)
  - MUSCLE RIGIDITY [None]
  - PARKINSON'S DISEASE [None]
  - INCORRECT ROUTE OF DRUG ADMINISTRATION [None]
  - TREMOR [None]
  - ATAXIA [None]
